FAERS Safety Report 16819980 (Version 3)
Quarter: 2019Q3

REPORT INFORMATION
  Report Type: Spontaneous
  Country: US (occurrence: US)
  Receive Date: 20190918
  Receipt Date: 20190920
  Transmission Date: 20191005
  Serious: No
  Sender: FDA-Public Use
  Company Number: US-JNJFOC-20190907568

PATIENT
  Sex: Female
  Weight: 45.4 kg

DRUGS (2)
  1. WOMENS ROGAINE [Suspect]
     Active Substance: MINOXIDIL
     Dosage: FILLED IT UP TO THE LINE ONCE DAILY
     Route: 061
  2. WOMENS ROGAINE [Suspect]
     Active Substance: MINOXIDIL
     Indication: ALOPECIA
     Dosage: FILLED IT UP TO THE LINE DAILY
     Route: 061

REACTIONS (1)
  - Drug ineffective [Unknown]
